FAERS Safety Report 7223377-0 (Version None)
Quarter: 2011Q1

REPORT INFORMATION
  Report Type: 
  Country: None (occurrence: None)
  Receive Date: 20110112
  Receipt Date: 20100525
  Transmission Date: 20110831
  Serious: No
  Sender: FDA-Public Use
  Company Number: US-ALLERGAN-1006838US

PATIENT
  Age: 66 Year
  Sex: Female

DRUGS (4)
  1. LOTREL [Concomitant]
  2. RESTASIS [Suspect]
     Indication: DRY EYE
     Dosage: 1 GTT, QD
     Dates: start: 20100501
  3. DONNATAL [Concomitant]
  4. FORTEO [Concomitant]

REACTIONS (1)
  - DIZZINESS [None]
